FAERS Safety Report 7096462-4 (Version None)
Quarter: 2010Q4

REPORT INFORMATION
  Report Type: 
  Country: None (occurrence: None)
  Receive Date: 20101111
  Receipt Date: 20101102
  Transmission Date: 20110411
  Serious: Yes (Death)
  Sender: FDA-Public Use
  Company Number: GXKR2010CA12359

PATIENT
  Age: 5 Year
  Sex: Female
  Weight: 35 kg

DRUGS (5)
  1. CLARITHROMYCIN [Suspect]
     Indication: EAR INFECTION
     Dosage: UNK
     Route: 065
  2. VALPROIC ACID (NGX) [Interacting]
     Indication: CONVULSION
     Dosage: 250 MG, BID
     Route: 065
  3. HYDROCODONE BITARTRATE [Interacting]
     Indication: NASOPHARYNGITIS
     Dosage: 1 TSP, TID
     Route: 048
  4. HYDROCODONE BITARTRATE [Interacting]
     Dosage: 15 MG, Q4H
     Route: 048
  5. HYDROCODONE BITARTRATE [Interacting]
     Dosage: 30 MG  TOTAL DOSE OVER 24 HOURS
     Route: 065

REACTIONS (6)
  - ACCIDENTAL OVERDOSE [None]
  - DIZZINESS [None]
  - DRUG INTERACTION [None]
  - LETHARGY [None]
  - SNORING [None]
  - UNRESPONSIVE TO STIMULI [None]
